FAERS Safety Report 4616171-8 (Version None)
Quarter: 2005Q1

REPORT INFORMATION
  Report Type: 
  Country: None (occurrence: None)
  Receive Date: 20050321
  Receipt Date: 20030527
  Transmission Date: 20050727
  Serious: No
  Sender: FDA-Public Use
  Company Number: 5990

PATIENT
  Age: 84 Year
  Sex: Male

DRUGS (6)
  1. AMIODARONE [Suspect]
     Indication: ARRHYTHMIA
     Dosage: 200 MG, PO
     Route: 048
  2. WARFARIN SODIUM [Concomitant]
  3. GOSERELIN [Concomitant]
  4. NITRAZEPAM [Concomitant]
  5. BECLOMETHASONE DIPROPIONATE [Concomitant]
  6. SALBUTAMOL   +    IPRATROPUM [Concomitant]

REACTIONS (1)
  - TESTICULAR SWELLING [None]
